FAERS Safety Report 6187934-5 (Version None)
Quarter: 2009Q2

REPORT INFORMATION
  Report Type: 
  Country: None (occurrence: None)
  Receive Date: 20090513
  Receipt Date: 20090508
  Transmission Date: 20091009
  Serious: Yes (Hospitalization, Other)
  Sender: FDA-Public Use
  Company Number: TW-MERCK-0905TWN00001

PATIENT
  Age: 73 Year
  Sex: Female

DRUGS (1)
  1. INVANZ [Suspect]
     Indication: CELLULITIS
     Route: 042
     Dates: start: 20090407, end: 20090416

REACTIONS (2)
  - DELIRIUM [None]
  - TREMOR [None]
